FAERS Safety Report 8521534-4 (Version None)
Quarter: 2012Q3

REPORT INFORMATION
  Report Type: 
  Country: None (occurrence: None)
  Receive Date: 20120719
  Receipt Date: 20120713
  Transmission Date: 20120928
  Serious: Yes (Hospitalization, Other)
  Sender: FDA-Public Use
  Company Number: PHHY2012JP057519

PATIENT
  Age: 52 Year
  Sex: Male
  Weight: 179 kg

DRUGS (4)
  1. OCTREOTIDE ACETATE [Suspect]
     Indication: CONGESTIVE CARDIOMYOPATHY
     Dosage: 50 UG,
     Route: 058
  2. INSULIN [Concomitant]
     Dosage: 80 U, DAILY
  3. INSULIN [Concomitant]
     Dosage: 50 UNITS DAILY
  4. INSULIN [Concomitant]
     Dosage: 16 UNITS DAILY

REACTIONS (3)
  - BLOOD GLUCOSE INCREASED [None]
  - DYSPNOEA EXERTIONAL [None]
  - WEIGHT INCREASED [None]
